FAERS Safety Report 9235862 (Version 1)
Quarter: 2013Q2

REPORT INFORMATION
  Report Type: Report from Study
  Country: KR (occurrence: KR)
  Receive Date: 20130417
  Receipt Date: 20130417
  Transmission Date: 20140414
  Serious: Yes (Other)
  Sender: FDA-Public Use
  Company Number: KR-ASTELLAS-2013US003971

PATIENT
  Sex: 0

DRUGS (3)
  1. ERLOTINIB TABLET [Suspect]
     Indication: PANCREATIC CARCINOMA
     Dosage: 100 MG DAILY, DAYS 1-21
     Route: 048
  2. GEMCITABINE HYDROCHLORIDE [Suspect]
     Indication: PANCREATIC CARCINOMA
     Dosage: 1250 MG/M2, DAYS 1 AND 8
     Route: 042
  3. CISPLATIN [Suspect]
     Indication: PANCREATIC CARCINOMA
     Dosage: 25 MG/M2, DAYS 1 AND 8
     Route: 042

REACTIONS (1)
  - Pericardial effusion [Unknown]
